FAERS Safety Report 5153670-7 (Version None)
Quarter: 2006Q4

REPORT INFORMATION
  Report Type: 
  Country: None (occurrence: None)
  Receive Date: 20061114
  Receipt Date: 20061106
  Transmission Date: 20070319
  Serious: Yes (Death)
  Sender: FDA-Public Use
  Company Number: 232256

PATIENT
  Sex: Male

DRUGS (1)
  1. ACTIVASE [Suspect]
     Indication: CEREBRAL INFARCTION
     Dosage: 60 MG, SINGLE, INTRAVENOUS
     Route: 042
     Dates: start: 20060802

REACTIONS (1)
  - GASTROINTESTINAL DISORDER [None]
